FAERS Safety Report 4366265-X (Version None)
Quarter: 2004Q2

REPORT INFORMATION
  Report Type: 
  Country: None (occurrence: None)
  Receive Date: 20040524
  Receipt Date: 20040511
  Transmission Date: 20050107
  Serious: Yes (Death)
  Sender: FDA-Public Use
  Company Number: 2004212595DE

PATIENT
  Age: 53 Year
  Sex: Male

DRUGS (3)
  1. CAMPTOSAR [Suspect]
     Indication: COLON CANCER METASTATIC
     Dosage: SINGLE
     Dates: start: 20040401, end: 20040401
  2. ERBITUX (CETUXIMAB) [Suspect]
     Indication: COLON CANCER METASTATIC
     Dosage: IV
     Route: 042
  3. OLICLINOMEL [Concomitant]

REACTIONS (5)
  - COLON CANCER METASTATIC [None]
  - COMA HEPATIC [None]
  - HYPERKALAEMIA [None]
  - MALIGNANT NEOPLASM PROGRESSION [None]
  - TUMOUR NECROSIS [None]
